FAERS Safety Report 7747464-3 (Version None)
Quarter: 2011Q3

REPORT INFORMATION
  Report Type: 
  Country: None (occurrence: None)
  Receive Date: 20110913
  Receipt Date: 20110901
  Transmission Date: 20111222
  Serious: Yes (Hospitalization, Other)
  Sender: FDA-Public Use
  Company Number: US-BAYER-2011-031005

PATIENT
  Age: 37 Year
  Sex: Female
  Weight: 74.83 kg

DRUGS (5)
  1. ASPIRIN [Concomitant]
     Dosage: 81 MG, QD
  2. HYDROCHLOROTHIAZIDE [Concomitant]
     Indication: BLOOD PRESSURE MANAGEMENT
     Dosage: 25 MG, QD
     Dates: start: 20050401
  3. FEXOFENADINE [Concomitant]
     Dosage: 180 MG, UNK
     Dates: start: 20060801
  4. FLUCONAZOLE [Concomitant]
     Indication: HYPERSENSITIVITY
     Dosage: 150 MG, UNK
     Dates: start: 20041101, end: 20091109
  5. DROSPIRENONE AND ETHINYL ESTRADIOL [Suspect]
     Indication: CONTRACEPTION
     Dosage: UNK
     Dates: start: 20080101, end: 20090401

REACTIONS (6)
  - ANHEDONIA [None]
  - ANXIETY [None]
  - PAIN [None]
  - INJURY [None]
  - PULMONARY EMBOLISM [None]
  - THROMBOSIS [None]
